FAERS Safety Report 8484862-7 (Version None)
Quarter: 2012Q3

REPORT INFORMATION
  Report Type: 
  Country: None (occurrence: None)
  Receive Date: 20120703
  Receipt Date: 20120621
  Transmission Date: 20120928
  Serious: Yes (Other)
  Sender: FDA-Public Use
  Company Number: US-ELI_LILLY_AND_COMPANY-US201106001593

PATIENT
  Sex: Female

DRUGS (3)
  1. FORTEO [Suspect]
     Indication: OSTEOPOROSIS
     Dosage: 20 UG, QD
  2. FORTEO [Suspect]
     Dosage: 20 UG, QD
  3. FORTEO [Suspect]
     Dosage: 20 UG, QD

REACTIONS (8)
  - NASAL CONGESTION [None]
  - DRUG DOSE OMISSION [None]
  - MEDICATION ERROR [None]
  - WEIGHT DECREASED [None]
  - SOMNOLENCE [None]
  - VENOUS OCCLUSION [None]
  - CARDIOVASCULAR INSUFFICIENCY [None]
  - NASOPHARYNGITIS [None]
